FAERS Safety Report 18400913 (Version 2)
Quarter: 2022Q2

REPORT INFORMATION
  Report Type: Spontaneous
  Country: US (occurrence: US)
  Receive Date: 20201020
  Receipt Date: 20220610
  Transmission Date: 20220721
  Serious: Yes (Other)
  Sender: FDA-Public Use
  Company Number: US-SAARTEMIS-SAC202010140287

PATIENT
  Age: 63 Year
  Sex: Male

DRUGS (1)
  1. ZANTAC [Suspect]
     Active Substance: RANITIDINE HYDROCHLORIDE
     Indication: Dyspepsia
     Dosage: UNK UNK, QD
     Route: 065
     Dates: start: 200801, end: 202004

REACTIONS (1)
  - Colorectal cancer [Unknown]

NARRATIVE: CASE EVENT DATE: 20170101
